FAERS Safety Report 6399981-9 (Version None)
Quarter: 2009Q4

REPORT INFORMATION
  Report Type: 
  Country: None (occurrence: None)
  Receive Date: 20091014
  Receipt Date: 20091005
  Transmission Date: 20100525
  Serious: Yes (Other)
  Sender: FDA-Public Use
  Company Number: US-ELI_LILLY_AND_COMPANY-US200910001355

PATIENT
  Sex: Male

DRUGS (2)
  1. HUMALOG [Suspect]
     Dosage: UNK, AS NEEDED
     Dates: start: 20020101
  2. LANTUS [Concomitant]

REACTIONS (4)
  - BLINDNESS UNILATERAL [None]
  - DIABETIC RETINOPATHY [None]
  - VISION BLURRED [None]
  - VISUAL IMPAIRMENT [None]
